FAERS Safety Report 13316491 (Version 1)
Quarter: 2017Q1

REPORT INFORMATION
  Report Type: Spontaneous
  Country: CA (occurrence: CA)
  Receive Date: 20170310
  Receipt Date: 20170310
  Transmission Date: 20170428
  Serious: Yes (Congenital Anomaly, Other)
  Sender: FDA-Public Use
  Company Number: CA-TEVA-747739ACC

PATIENT
  Age: 23 Year
  Sex: Female
  Weight: 63.56 kg

DRUGS (5)
  1. VENLAFAXINE XR [Suspect]
     Active Substance: VENLAFAXINE HYDROCHLORIDE
     Indication: DEPRESSION
     Dosage: 75 MILLIGRAM DAILY;
     Route: 048
  2. GRAVOL [Concomitant]
     Active Substance: DIMENHYDRINATE
  3. OMEGA 3-6-9 [Concomitant]
     Active Substance: FISH OIL
  4. PRENATAL MULTIVITAMIN [Concomitant]
  5. ACETAMINOPHEN. [Concomitant]
     Active Substance: ACETAMINOPHEN

REACTIONS (1)
  - Abortion spontaneous [Recovered/Resolved]
